FAERS Safety Report 16292593 (Version 2)
Quarter: 2019Q2

REPORT INFORMATION
  Report Type: Spontaneous
  Country: US (occurrence: US)
  Receive Date: 20190509
  Receipt Date: 20190516
  Transmission Date: 20190711
  Serious: No
  Sender: FDA-Public Use
  Company Number: US-MILLICENT HOLDINGS LTD.-MILL20192247

PATIENT
  Age: 67 Year
  Sex: Female

DRUGS (1)
  1. FEMRING [Suspect]
     Active Substance: ESTRADIOL ACETATE
     Indication: PRODUCT USED FOR UNKNOWN INDICATION
     Dosage: 1 RING EVERY THREE MONTHS
     Route: 067

REACTIONS (3)
  - Discomfort [Recovered/Resolved]
  - Vaginal haemorrhage [Recovered/Resolved]
  - Product physical issue [None]

NARRATIVE: CASE EVENT DATE: 20190411
